FAERS Safety Report 16775008 (Version 2)
Quarter: 2019Q4

REPORT INFORMATION
  Report Type: Report from Study
  Country: US (occurrence: US)
  Receive Date: 20190905
  Receipt Date: 20191111
  Transmission Date: 20200122
  Serious: Yes (Hospitalization, Other)
  Sender: FDA-Public Use
  Company Number: US-BAYER-2019-158308

PATIENT
  Age: 37 Year
  Sex: Female

DRUGS (12)
  1. BUSPIRON [HYOSCINE BUTYLBROMIDE;METAMIZOLE SODIUM MONOHYDRATE] [Suspect]
     Active Substance: BUTYLSCOPOLAMINE BROMIDE\METAMIZOLE SODIUM
  2. METFORMIN [Concomitant]
     Active Substance: METFORMIN HYDROCHLORIDE
  3. OXYBUTYNIN. [Suspect]
     Active Substance: OXYBUTYNIN CHLORIDE
  4. KLONOPIN [Concomitant]
     Active Substance: CLONAZEPAM
  5. BETASERON [Suspect]
     Active Substance: INTERFERON BETA-1B
     Indication: RELAPSING-REMITTING MULTIPLE SCLEROSIS
     Dosage: 8 MIU, QOD
     Route: 058
     Dates: start: 20180417
  6. ZYRTEC [Suspect]
     Active Substance: CETIRIZINE HYDROCHLORIDE
  7. RISPERIDONE. [Suspect]
     Active Substance: RISPERIDONE
  8. LAMOTRIGINE. [Suspect]
     Active Substance: LAMOTRIGINE
  9. WELLBUTRIN [Suspect]
     Active Substance: BUPROPION HYDROCHLORIDE
  10. ATORVASTATIN [Concomitant]
     Active Substance: ATORVASTATIN
     Dosage: UNK
  11. ALEVE [Suspect]
     Active Substance: NAPROXEN SODIUM
     Dosage: UNK
  12. BLACKMORES ALIVE! WOMEN^S MULTIVITAMIN [Concomitant]

REACTIONS (5)
  - Product dose omission [None]
  - Hypertension [Recovered/Resolved]
  - Pulmonary thrombosis [Recovering/Resolving]
  - Heart rate increased [Recovered/Resolved]
  - Sepsis [Recovering/Resolving]

NARRATIVE: CASE EVENT DATE: 20190822
